FAERS Safety Report 5748939-9 (Version None)
Quarter: 2008Q2

REPORT INFORMATION
  Report Type: 
  Country: None (occurrence: None)
  Receive Date: 20080526
  Receipt Date: 20080425
  Transmission Date: 20081010
  Serious: No
  Sender: FDA-Public Use
  Company Number: US-BAYER-200813964NA

PATIENT
  Sex: Male

DRUGS (1)
  1. AVELOX [Suspect]
     Indication: DRUG USE FOR UNKNOWN INDICATION
     Route: 048

REACTIONS (1)
  - NERVOUS SYSTEM DISORDER [None]
